FAERS Safety Report 16972686 (Version 3)
Quarter: 2019Q4

REPORT INFORMATION
  Report Type: Spontaneous
  Country: US (occurrence: US)
  Receive Date: 20191030
  Receipt Date: 20191203
  Transmission Date: 20200122
  Serious: No
  Sender: FDA-Public Use
  Company Number: US-CELGENEUS-USA-20191008817

PATIENT
  Age: 66 Year
  Sex: Female
  Weight: 89.89 kg

DRUGS (2)
  1. REVLIMID [Suspect]
     Active Substance: LENALIDOMIDE
     Dosage: 10 MILLIGRAM
     Route: 048
     Dates: start: 201807
  2. REVLIMID [Suspect]
     Active Substance: LENALIDOMIDE
     Indication: PLASMA CELL MYELOMA
     Dosage: 25 MILLIGRAM
     Route: 048
     Dates: start: 20180118

REACTIONS (7)
  - Diarrhoea [Not Recovered/Not Resolved]
  - Anaemia [Unknown]
  - Respiratory tract congestion [Not Recovered/Not Resolved]
  - Protein total increased [Unknown]
  - Productive cough [Not Recovered/Not Resolved]
  - Sinusitis [Recovering/Resolving]
  - Mucous stools [Not Recovered/Not Resolved]

NARRATIVE: CASE EVENT DATE: 201910
